FAERS Safety Report 5925584-3 (Version None)
Quarter: 2008Q4

REPORT INFORMATION
  Report Type: 
  Country: None (occurrence: None)
  Receive Date: 20081021
  Receipt Date: 20081015
  Transmission Date: 20090506
  Serious: Yes (Other)
  Sender: FDA-Public Use
  Company Number: A0738435A

PATIENT
  Age: 48 Year
  Sex: Female

DRUGS (4)
  1. ADVAIR DISKUS 100/50 [Suspect]
     Indication: CHRONIC OBSTRUCTIVE PULMONARY DISEASE
     Dosage: 1PUFF TWICE PER DAY
     Route: 055
     Dates: start: 19990101
  2. GUAIFENESIN [Concomitant]
  3. BENZONATATE [Concomitant]
  4. EYE DROPS [Concomitant]

REACTIONS (7)
  - CATARACT [None]
  - DACRYOSTENOSIS ACQUIRED [None]
  - DRY EYE [None]
  - EYE DISORDER [None]
  - PHOTOSENSITIVITY REACTION [None]
  - SCAR [None]
  - VISION BLURRED [None]
